FAERS Safety Report 24824805 (Version 1)
Quarter: 2025Q1

REPORT INFORMATION
  Report Type: Spontaneous
  Country: US (occurrence: US)
  Receive Date: 20250109
  Receipt Date: 20250109
  Transmission Date: 20250409
  Serious: No
  Sender: BRISTOL-MYERS SQUIBB COMPANY
  Company Number: US-BRISTOL-MYERS SQUIBB COMPANY-2025-003696

PATIENT
  Age: 78 Year
  Sex: Female

DRUGS (2)
  1. ELIQUIS [Suspect]
     Active Substance: APIXABAN
     Indication: Product used for unknown indication
     Dosage: STRENGTH: 5 MG
     Route: 048
  2. ELIQUIS [Suspect]
     Active Substance: APIXABAN
     Dosage: STRENGTH: 2.5 MG
     Route: 048
     Dates: start: 20241216

REACTIONS (1)
  - Prescription drug used without a prescription [Unknown]

NARRATIVE: CASE EVENT DATE: 20241216
